FAERS Safety Report 9231110 (Version 2)
Quarter: 2013Q3

REPORT INFORMATION
  Report Type: Spontaneous
  Country: JP (occurrence: JP)
  Receive Date: 20130415
  Receipt Date: 20130829
  Transmission Date: 20140515
  Serious: Yes (Hospitalization, Other)
  Sender: FDA-Public Use
  Company Number: PHHY2013JP030622

PATIENT
  Age: 70 Year
  Sex: Male

DRUGS (7)
  1. MORPHINE [Suspect]
     Indication: DIPLEGIA
     Dosage: 60 MG/DAY
  2. MORPHINE [Suspect]
     Dosage: 3 MG
     Route: 042
  3. FENTANYL [Suspect]
     Indication: DIPLEGIA
     Dosage: 8.4 MG/3 DAYS
  4. GABAPENTIN [Suspect]
     Indication: DIPLEGIA
     Dosage: 1600 MG/DAY
  5. GABALON [Suspect]
     Indication: DIPLEGIA
     Dosage: 30 MG, DAILY
     Route: 048
  6. GABALON [Suspect]
     Dosage: 15 MG, DAILY
     Route: 048
  7. OPIOIDS [Concomitant]
     Indication: PAIN

REACTIONS (12)
  - Overdose [Unknown]
  - Acute myocardial infarction [Recovered/Resolved]
  - Chest discomfort [Recovered/Resolved]
  - Cardiac enzymes increased [Unknown]
  - Dyspnoea [Recovered/Resolved]
  - Respiratory distress [Recovered/Resolved]
  - Coronary artery stenosis [Unknown]
  - Altered state of consciousness [Recovering/Resolving]
  - Drug level decreased [Unknown]
  - Hypophagia [Unknown]
  - Dyskinesia [Recovered/Resolved]
  - Withdrawal syndrome [Unknown]
